FAERS Safety Report 11422074 (Version 1)
Quarter: 2015Q3

REPORT INFORMATION
  Report Type: Spontaneous
  Country: US (occurrence: None)
  Receive Date: 20150826
  Receipt Date: 20150826
  Transmission Date: 20151125
  Serious: Yes (Hospitalization)
  Sender: FDA-Public Use
  Company Number: None

PATIENT
  Age: 59 Year
  Sex: Female
  Weight: 59.2 kg

DRUGS (2)
  1. BEVACIZUMAB (RHUMAB VEGF) [Suspect]
     Active Substance: BEVACIZUMAB
     Dates: end: 20140820
  2. ALIMTA [Suspect]
     Active Substance: PEMETREXED DISODIUM
     Dates: end: 20150820

REACTIONS (6)
  - Pleural effusion [None]
  - Ascites [None]
  - Neuralgia [None]
  - Pericardial effusion [None]
  - Ileus [None]
  - Intestinal obstruction [None]

NARRATIVE: CASE EVENT DATE: 20150823
